FAERS Safety Report 8898220 (Version 1)
Quarter: 2012Q4

REPORT INFORMATION
  Report Type: 
  Country: US (occurrence: US)
  Receive Date: 20121109
  Receipt Date: 20121109
  Transmission Date: 20130627
  Serious: No
  Sender: FDA-Public Use
  Company Number: US-BIOGENIDEC-2012BI049581

PATIENT
  Age: 57 Year
  Sex: Female

DRUGS (1)
  1. TYSABRI [Suspect]
     Indication: MULTIPLE SCLEROSIS
     Route: 042
     Dates: start: 20120130

REACTIONS (6)
  - Abdominal pain upper [Not Recovered/Not Resolved]
  - Poor venous access [Recovered/Resolved]
  - Back pain [Not Recovered/Not Resolved]
  - Infusion site bruising [Recovered/Resolved]
  - Arthralgia [Not Recovered/Not Resolved]
  - Headache [Not Recovered/Not Resolved]
